FAERS Safety Report 5825519-8 (Version None)
Quarter: 2008Q3

REPORT INFORMATION
  Report Type: 
  Country: None (occurrence: None)
  Receive Date: 20080723
  Receipt Date: 20080619
  Transmission Date: 20090109
  Serious: Yes (Hospitalization)
  Sender: FDA-Public Use
  Company Number: ATELFORD06182008

PATIENT
  Sex: Female

DRUGS (1)
  1. SSS BG+ EXPEDITION SPF 30 AEROSOL [Suspect]

REACTIONS (10)
  - HEADACHE [None]
  - HYPERHIDROSIS [None]
  - LIP SWELLING [None]
  - PARAESTHESIA [None]
  - PRURITUS [None]
  - RASH [None]
  - RHINORRHOEA [None]
  - SWELLING FACE [None]
  - THIRST [None]
  - THROAT TIGHTNESS [None]
